FAERS Safety Report 5995331-8 (Version None)
Quarter: 2008Q4

REPORT INFORMATION
  Report Type: 
  Country: None (occurrence: None)
  Receive Date: 20081212
  Receipt Date: 20080923
  Transmission Date: 20090506
  Serious: No
  Sender: FDA-Public Use
  Company Number: US-ABBOTT-08P-163-0478515-00

PATIENT
  Sex: Female
  Weight: 93.524 kg

DRUGS (9)
  1. HUMIRA [Suspect]
     Indication: PSORIASIS
     Dates: start: 20080201
  2. HUMIRA [Suspect]
     Route: 058
     Dates: start: 20080701
  3. HUMIRA [Suspect]
     Route: 058
  4. CITALOPRAM HYDROBROMIDE [Concomitant]
     Indication: ANXIETY
     Route: 048
     Dates: start: 20070101
  5. RANITIDINE [Concomitant]
     Indication: GASTROOESOPHAGEAL REFLUX DISEASE
     Route: 048
     Dates: start: 20070101
  6. MAXZIDE [Concomitant]
     Indication: DIURETIC THERAPY
     Route: 048
  7. ANTIPAX [Concomitant]
     Indication: WEIGHT CONTROL
     Route: 048
  8. ALPRAZOLAM [Concomitant]
     Indication: ANXIETY
     Dosage: 1-0.5MG TABLET IN MORNING, 1-0.5 TABLET IN EVENING
     Route: 048
     Dates: start: 20060201
  9. LORATADINE [Concomitant]
     Indication: PAIN
     Route: 048
     Dates: start: 20070101

REACTIONS (1)
  - DRUG INEFFECTIVE [None]
